FAERS Safety Report 15144379 (Version 1)
Quarter: 2018Q3

REPORT INFORMATION
  Report Type: Spontaneous
  Country: US (occurrence: US)
  Receive Date: 20180713
  Receipt Date: 20180713
  Transmission Date: 20181010
  Serious: No
  Sender: FDA-Public Use
  Company Number: US-NOVOPROD-599720

PATIENT
  Age: 45 Year
  Sex: Male

DRUGS (2)
  1. FIASP 3ML PDS290 [Suspect]
     Active Substance: INSULIN ASPART
     Indication: TYPE 1 DIABETES MELLITUS
     Dosage: BASAL RATE 0.8 UNITS TO 0.95 UNITS PER HOUR
     Route: 058
     Dates: start: 20180301
  2. FIASP 3ML PDS290 [Suspect]
     Active Substance: INSULIN ASPART
     Dosage: BASAL RATE UPTO 7,8,9 AND 10 UNITS PER HOUR
     Route: 058
     Dates: start: 2018, end: 2018

REACTIONS (2)
  - Wrong technique in product usage process [Not Recovered/Not Resolved]
  - Blood glucose increased [Recovered/Resolved]

NARRATIVE: CASE EVENT DATE: 20180301
